FAERS Safety Report 6860694-8 (Version None)
Quarter: 2010Q3

REPORT INFORMATION
  Report Type: 
  Country: None (occurrence: None)
  Receive Date: 20100719
  Receipt Date: 20100719
  Transmission Date: 20110219
  Serious: Yes (Hospitalization)
  Sender: FDA-Public Use
  Company Number: None

PATIENT
  Age: 30 Year
  Sex: Female
  Weight: 50 kg

DRUGS (3)
  1. VALPROIC ACID [Suspect]
     Indication: BREAST CANCER METASTATIC
     Dosage: 250 TO 500MG TID DAYS 1-28 PO, 1 CYCLE
     Route: 048
     Dates: start: 20100519, end: 20100629
  2. HYDRALAZINE HCL [Suspect]
     Dosage: 50MG DAILY DAYS 1-28 PO, 1 CYCLE
     Route: 048
     Dates: start: 20100602, end: 20100629
  3. FLEXERIL [Concomitant]

REACTIONS (8)
  - DRUG LEVEL DECREASED [None]
  - HYPERTENSION [None]
  - MALIGNANT NEOPLASM PROGRESSION [None]
  - MENTAL STATUS CHANGES [None]
  - PYREXIA [None]
  - SOMNOLENCE [None]
  - TACHYCARDIA [None]
  - UNRESPONSIVE TO STIMULI [None]
